FAERS Safety Report 7199837 (Version 3)
Quarter: 2013Q4

REPORT INFORMATION
  Report Type: Spontaneous
  Country: US (occurrence: US)
  Receive Date: 20091204
  Receipt Date: 20131210
  Transmission Date: 20140711
  Serious: Yes (Other)
  Sender: FDA-Public Use
  Company Number: US-SANOFI-AVENTIS-2009SA005399

PATIENT
  Age: 65 Year
  Sex: Male

DRUGS (15)
  1. MULTAQ [Suspect]
     Indication: ATRIAL FIBRILLATION
     Route: 048
     Dates: start: 20091102
  2. CARDIZEM [Concomitant]
     Indication: BLOOD PRESSURE
     Route: 048
     Dates: start: 1997, end: 2009
  3. CARDIZEM [Concomitant]
     Indication: HEART RATE
     Route: 048
     Dates: start: 1997, end: 2009
  4. CARDIZEM [Concomitant]
     Indication: BLOOD PRESSURE
     Route: 048
     Dates: start: 2009
  5. CARDIZEM [Concomitant]
     Indication: HEART RATE
     Route: 048
     Dates: start: 2009
  6. ATENOLOL [Concomitant]
     Indication: BLOOD PRESSURE
     Route: 048
     Dates: start: 200801
  7. ATENOLOL [Concomitant]
     Indication: HEART RATE
     Route: 048
     Dates: start: 200801
  8. MAGNESIUM OXIDE [Concomitant]
     Route: 048
     Dates: start: 1997
  9. RAMIPRIL [Concomitant]
     Indication: BLOOD PRESSURE
     Route: 048
  10. WARFARIN [Concomitant]
     Indication: THROMBOSIS PROPHYLAXIS
     Route: 048
     Dates: start: 1999
  11. XANAX [Concomitant]
     Route: 048
  12. TENORMIN [Concomitant]
     Indication: BLOOD PRESSURE
     Dates: start: 1997
  13. TENORMIN [Concomitant]
     Indication: BLOOD PRESSURE
  14. HYDROCHLOROTHIAZIDE [Concomitant]
  15. TYLENOL [Concomitant]
     Route: 065

REACTIONS (8)
  - Gastrointestinal disorder [Unknown]
  - Atrial fibrillation [Not Recovered/Not Resolved]
  - Fatigue [Not Recovered/Not Resolved]
  - Abdominal distension [Recovered/Resolved]
  - Dyspnoea [Recovered/Resolved]
  - Hypertension [Unknown]
  - Incorrect dose administered [Unknown]
  - Therapeutic response decreased [Unknown]
